FAERS Safety Report 7586030-X (Version None)
Quarter: 2011Q2

REPORT INFORMATION
  Report Type: 
  Country: None (occurrence: None)
  Receive Date: 20110624
  Receipt Date: 20110613
  Transmission Date: 20111010
  Serious: Yes (Hospitalization)
  Sender: FDA-Public Use
  Company Number: DSA_45417_2011

PATIENT
  Sex: Female
  Weight: 61 kg

DRUGS (7)
  1. DILTIAZEM [Suspect]
     Indication: PRODUCT USED FOR UNKNOWN INDICATION
     Dosage: 180 MG, DF
     Dates: end: 20101224
  2. SYNTHROID [Concomitant]
  3. MULTAQ [Suspect]
     Indication: ATRIAL FIBRILLATION
     Dosage: 400 MG BID ORAL
     Route: 048
     Dates: start: 20101222, end: 20101228
  4. VITAMIN D [Concomitant]
  5. COUMADIN [Concomitant]
  6. LOPRESSOR [Suspect]
     Dosage: 50 MG BID
     Dates: end: 20101224
  7. ASPIRIN [Concomitant]

REACTIONS (8)
  - FEELING HOT [None]
  - PERICARDIAL EFFUSION [None]
  - ANAPHYLACTIC REACTION [None]
  - ARRHYTHMIA [None]
  - EYE SWELLING [None]
  - ATRIAL FIBRILLATION [None]
  - PLEURAL EFFUSION [None]
  - PALPITATIONS [None]
